FAERS Safety Report 25157405 (Version 2)
Quarter: 2025Q2

REPORT INFORMATION
  Report Type: Spontaneous
  Country: US (occurrence: US)
  Receive Date: 20250403
  Receipt Date: 20250404
  Transmission Date: 20250717
  Serious: No
  Sender: JOHNSON AND JOHNSON
  Company Number: US-JNJFOC-20250235389

PATIENT
  Sex: Female

DRUGS (18)
  1. TOPAMAX [Suspect]
     Active Substance: TOPIRAMATE
     Indication: Migraine
     Route: 048
  2. TOPAMAX [Suspect]
     Active Substance: TOPIRAMATE
     Route: 048
  3. TOPAMAX [Suspect]
     Active Substance: TOPIRAMATE
     Route: 048
  4. OCREVUS [Concomitant]
     Active Substance: OCRELIZUMAB
     Route: 050
  5. AMPYRA [Concomitant]
     Active Substance: DALFAMPRIDINE
     Route: 050
  6. COPAXONE [Concomitant]
     Active Substance: GLATIRAMER ACETATE
     Route: 050
  7. ZETIA [Concomitant]
     Active Substance: EZETIMIBE
     Route: 050
  8. LYRICA [Concomitant]
     Active Substance: PREGABALIN
     Route: 050
  9. ZOMIG [Concomitant]
     Active Substance: ZOLMITRIPTAN
     Route: 050
  10. PAMELOR [Concomitant]
     Active Substance: NORTRIPTYLINE HYDROCHLORIDE
     Route: 050
  11. PHENOBARBITAL [Concomitant]
     Active Substance: PHENOBARBITAL
     Route: 050
  12. ZANAFLEX [Concomitant]
     Active Substance: TIZANIDINE HYDROCHLORIDE
     Route: 050
  13. ZOVIRAX [Concomitant]
     Active Substance: ACYCLOVIR
     Route: 050
  14. NEURONTIN [Concomitant]
     Active Substance: GABAPENTIN
     Route: 050
  15. LASIX [Concomitant]
     Active Substance: FUROSEMIDE
     Route: 050
  16. GONADOTROPHIN, CHORIONIC [Concomitant]
     Active Substance: GONADOTROPHIN, CHORIONIC
     Route: 050
  17. IMURAN [Concomitant]
     Active Substance: AZATHIOPRINE
     Route: 050
  18. ELAVIL [Concomitant]
     Active Substance: AMITRIPTYLINE HYDROCHLORIDE
     Route: 050

REACTIONS (1)
  - Treatment failure [Unknown]
